FAERS Safety Report 24946457 (Version 1)
Quarter: 2025Q1

REPORT INFORMATION
  Report Type: Spontaneous
  Country: US (occurrence: US)
  Receive Date: 20250210
  Receipt Date: 20250210
  Transmission Date: 20250408
  Serious: No
  Sender: DAIICHI
  Company Number: US-DSJP-DS-2025-124195-US

PATIENT
  Sex: Female

DRUGS (2)
  1. SAVAYSA [Suspect]
     Active Substance: EDOXABAN TOSYLATE
     Indication: Pulmonary embolism
     Route: 065
  2. SAVAYSA [Suspect]
     Active Substance: EDOXABAN TOSYLATE
     Indication: Deep vein thrombosis

REACTIONS (2)
  - Product use issue [Not Recovered/Not Resolved]
  - Inability to afford medication [Not Recovered/Not Resolved]
